FAERS Safety Report 8545422-2 (Version None)
Quarter: 2012Q3

REPORT INFORMATION
  Report Type: 
  Country: None (occurrence: None)
  Receive Date: 20120727
  Receipt Date: 20111103
  Transmission Date: 20120928
  Serious: No
  Sender: FDA-Public Use
  Company Number: US-ASTRAZENECA-2011SE66713

PATIENT
  Age: 35 Year
  Sex: Male

DRUGS (4)
  1. HYDROXYZINE [Concomitant]
  2. RISPERDAL [Concomitant]
  3. SEROQUEL XR [Suspect]
     Route: 048
  4. FLUOXETINE HCL [Concomitant]

REACTIONS (1)
  - DRUG SCREEN POSITIVE [None]
